FAERS Safety Report 16001512 (Version 1)
Quarter: 2019Q1

REPORT INFORMATION
  Report Type: Spontaneous
  Country: US (occurrence: US)
  Receive Date: 20190225
  Receipt Date: 20190225
  Transmission Date: 20190418
  Serious: Yes (Other)
  Sender: FDA-Public Use
  Company Number: US-ALLERGAN-1907310US

PATIENT
  Sex: Female

DRUGS (1)
  1. ZENPEP [Suspect]
     Active Substance: PANCRELIPASE AMYLASE\PANCRELIPASE LIPASE\PANCRELIPASE PROTEASE
     Indication: PANCREATIC FAILURE
     Dosage: UNK
     Route: 065
     Dates: start: 2007

REACTIONS (8)
  - Intestinal haemorrhage [Unknown]
  - Choking [Unknown]
  - Dyspepsia [Unknown]
  - Headache [Unknown]
  - Anxiety [Unknown]
  - Insomnia [Unknown]
  - Vomiting [Unknown]
  - Pancreatitis [Unknown]
